FAERS Safety Report 4591230-7 (Version None)
Quarter: 2005Q1

REPORT INFORMATION
  Report Type: 
  Country: None (occurrence: None)
  Receive Date: 20050225
  Receipt Date: 20050216
  Transmission Date: 20050727
  Serious: Yes (Hospitalization)
  Sender: FDA-Public Use
  Company Number: US-MERCK-0502USA02185

PATIENT
  Age: 70 Year
  Sex: Female

DRUGS (5)
  1. VIOXX [Suspect]
     Indication: MONARTHRITIS
     Route: 048
     Dates: start: 20010101, end: 20041001
  2. VIOXX [Suspect]
     Route: 048
     Dates: start: 20010101, end: 20041001
  3. PROZAC [Concomitant]
     Route: 065
  4. NEXIUM [Concomitant]
     Route: 065
  5. AMBIEN [Concomitant]
     Route: 065

REACTIONS (2)
  - CARDIAC DISORDER [None]
  - UNEVALUABLE EVENT [None]
